FAERS Safety Report 18762917 (Version 1)
Quarter: 2021Q1

REPORT INFORMATION
  Report Type: Spontaneous
  Country: IT (occurrence: IT)
  Receive Date: 20210120
  Receipt Date: 20210120
  Transmission Date: 20210419
  Serious: Yes (Other)
  Sender: FDA-Public Use
  Company Number: IT-MYLANLABS-2021M1003082

PATIENT
  Age: 45 Year
  Sex: Female

DRUGS (1)
  1. ADALIMUMAB [Suspect]
     Active Substance: ADALIMUMAB
     Indication: ACNE CYSTIC
     Dosage: 40 MILLIGRAM, BIWEEKLY
     Route: 065

REACTIONS (2)
  - Off label use [Unknown]
  - Primary progressive multiple sclerosis [Unknown]
